FAERS Safety Report 19186866 (Version 1)
Quarter: 2021Q2

REPORT INFORMATION
  Report Type: Report from Study
  Country: US (occurrence: US)
  Receive Date: 20210428
  Receipt Date: 20210428
  Transmission Date: 20210717
  Serious: Yes (Death, Other)
  Sender: FDA-Public Use
  Company Number: US-GILEAD-2021-0526921

PATIENT
  Age: 83 Year
  Sex: Female

DRUGS (1)
  1. IDELALISIB [Suspect]
     Active Substance: IDELALISIB
     Indication: PRODUCT USED FOR UNKNOWN INDICATION
     Dosage: 100 MG, BID 2 WEEKS ON 2 WEEKS OFF
     Route: 048
     Dates: start: 20181120, end: 20210208

REACTIONS (1)
  - Death [Fatal]

NARRATIVE: CASE EVENT DATE: 20210208
